FAERS Safety Report 10272935 (Version 1)
Quarter: 2014Q1

REPORT INFORMATION
  Report Type: Spontaneous
  Country: US (occurrence: None)
  Receive Date: 20140306
  Receipt Date: 20140306
  Transmission Date: 20141002
  Serious: Yes (Other)
  Sender: FDA-Public Use
  Company Number: 163-21880-13081277

PATIENT
  Age: 79 Year
  Sex: Female
  Weight: 65.8 kg

DRUGS (5)
  1. REVLIMID (LENALIDOMIDE) (25 MILLIGRAM, CAPSULES) [Suspect]
     Indication: PLASMA CELL MYELOMA
     Route: 048
     Dates: start: 201202
  2. LISINOPRIL (LISINOPRIL) (TABLETS) [Concomitant]
  3. COMPLETE MULTIVITAMIN (MULTIVITAMINS) (TABLETS) [Concomitant]
  4. GABAPENTIN (GABAPENTIN) (TABLETS) [Concomitant]
  5. AMOX TR-K CLV (TABLETS) [Concomitant]

REACTIONS (1)
  - Thrombosis [None]
